FAERS Safety Report 24741366 (Version 1)
Quarter: 2024Q4

REPORT INFORMATION
  Report Type: Spontaneous
  Country: US (occurrence: US)
  Receive Date: 20241217
  Receipt Date: 20241217
  Transmission Date: 20250115
  Serious: No
  Sender: ALEXION PHARMACEUTICALS
  Company Number: US-AstraZeneca-CH-00769362A

PATIENT

DRUGS (5)
  1. LYNPARZA [Suspect]
     Active Substance: OLAPARIB
     Route: 065
  2. LYNPARZA [Suspect]
     Active Substance: OLAPARIB
     Route: 065
  3. LYNPARZA [Suspect]
     Active Substance: OLAPARIB
     Route: 065
  4. LYNPARZA [Suspect]
     Active Substance: OLAPARIB
     Route: 065
  5. OSELTAMIVIR PHOSPHATE [Concomitant]
     Active Substance: OSELTAMIVIR PHOSPHATE
     Indication: Influenza
     Dosage: 75 MILLIGRAM, BID

REACTIONS (3)
  - Influenza [Unknown]
  - Therapy cessation [Unknown]
  - No adverse event [Unknown]
